FAERS Safety Report 16973450 (Version 1)
Quarter: 2019Q4

REPORT INFORMATION
  Report Type: Spontaneous
  Country: US (occurrence: US)
  Receive Date: 20191030
  Receipt Date: 20191030
  Transmission Date: 20200122
  Serious: Yes (Other)
  Sender: FDA-Public Use
  Company Number: US-GILEAD-2019-0434788

PATIENT
  Sex: Male

DRUGS (2)
  1. ATRIPLA [Suspect]
     Active Substance: EFAVIRENZ\EMTRICITABINE\TENOFOVIR DISOPROXIL FUMARATE
     Indication: HIV INFECTION
     Dosage: UNK
     Route: 048
     Dates: start: 2008, end: 2009
  2. TRUVADA [Suspect]
     Active Substance: EMTRICITABINE\TENOFOVIR DISOPROXIL FUMARATE
     Indication: HIV INFECTION
     Dosage: UNK
     Route: 048
     Dates: start: 2009, end: 2017

REACTIONS (17)
  - Anxiety [Not Recovered/Not Resolved]
  - Arthritis [Unknown]
  - Meniscus injury [Unknown]
  - Emotional distress [Not Recovered/Not Resolved]
  - Chronic kidney disease [Unknown]
  - Osteonecrosis [Unknown]
  - Osteochondrosis [Unknown]
  - Spinal osteoarthritis [Unknown]
  - Synovial cyst [Unknown]
  - Anhedonia [Not Recovered/Not Resolved]
  - Intervertebral disc degeneration [Unknown]
  - Sacroiliitis [Unknown]
  - Facet joint syndrome [Unknown]
  - Economic problem [Not Recovered/Not Resolved]
  - Meniscus cyst [Unknown]
  - Pain [Not Recovered/Not Resolved]
  - Patellofemoral pain syndrome [Unknown]
